FAERS Safety Report 13728925 (Version 1)
Quarter: 2017Q3

REPORT INFORMATION
  Report Type: Report from Study
  Country: None (occurrence: BR)
  Receive Date: 20170707
  Receipt Date: 20170707
  Transmission Date: 20171127
  Serious: Yes (Death, Hospitalization, Other)
  Sender: FDA-Public Use
  Company Number: BR-ABBVIE-17K-020-2030862-00

PATIENT
  Age: 60 Year
  Sex: Female

DRUGS (3)
  1. HUMIRA [Suspect]
     Active Substance: ADALIMUMAB
     Indication: ANKYLOSING SPONDYLITIS
     Route: 058
     Dates: start: 20130615
  2. CARVEDILOL. [Concomitant]
     Active Substance: CARVEDILOL
     Indication: CARDIAC FAILURE
  3. HUMIRA [Suspect]
     Active Substance: ADALIMUMAB
     Route: 058
     Dates: start: 201609

REACTIONS (16)
  - Nodule [Unknown]
  - Fall [Recovered/Resolved]
  - Blood pressure increased [Fatal]
  - Hypoaesthesia [Unknown]
  - Cough [Unknown]
  - Head injury [Recovered/Resolved]
  - Cardiomegaly [Unknown]
  - Pulmonary oedema [Fatal]
  - Cardiac failure [Unknown]
  - Back pain [Unknown]
  - Gait disturbance [Recovered/Resolved]
  - Headache [Unknown]
  - Hypoaesthesia [Unknown]
  - Immunodeficiency [Unknown]
  - Abdominal distension [Unknown]
  - Monoplegia [Unknown]

NARRATIVE: CASE EVENT DATE: 20160730
